FAERS Safety Report 6641867-6 (Version None)
Quarter: 2010Q1

REPORT INFORMATION
  Report Type: 
  Country: None (occurrence: None)
  Receive Date: 20100319
  Receipt Date: 20100309
  Transmission Date: 20100710
  Serious: Yes (Other)
  Sender: FDA-Public Use
  Company Number: DE-BAYER-201010259GPV

PATIENT
  Age: 17 Year
  Sex: Female

DRUGS (1)
  1. LEVONORGESTREL + ETHINYL ESTRADIOL [Suspect]
     Indication: ORAL CONTRACEPTION
     Route: 048
     Dates: start: 20080101

REACTIONS (4)
  - ANGIOEDEMA [None]
  - EYE SWELLING [None]
  - FOOD ALLERGY [None]
  - PHARYNGEAL OEDEMA [None]
